FAERS Safety Report 17519970 (Version 1)
Quarter: 2020Q1

REPORT INFORMATION
  Report Type: Other
  Country: US (occurrence: US)
  Receive Date: 20200309
  Receipt Date: 20200309
  Transmission Date: 20200409
  Serious: Yes (Life-Threatening, Hospitalization, Other)
  Sender: FDA-Public Use
  Company Number: US-C B FLEET CO INC-202002-US-000910

PATIENT
  Age: 61 Year
  Sex: Female

DRUGS (1)
  1. ASPIRIN. [Suspect]
     Active Substance: ASPIRIN
     Indication: CHEST PAIN
     Dosage: TAKING TWO 325MG ASPIRIN EVERY 2 HOURS WHILE AWAKE FOR 3 WEEKS
     Route: 048

REACTIONS (5)
  - Malaise [Recovered/Resolved]
  - Hemiparesis [Recovered/Resolved]
  - Toxicity to various agents [Recovered/Resolved]
  - Incorrect product administration duration [None]
  - Overdose [Recovered/Resolved]
